FAERS Safety Report 25687008 (Version 1)
Quarter: 2025Q3

REPORT INFORMATION
  Report Type: Report from Study
  Country: GB (occurrence: GB)
  Receive Date: 20250816
  Receipt Date: 20250816
  Transmission Date: 20251020
  Serious: Yes (Hospitalization)
  Sender: IPSEN BIOPHARMACEUTICALS, INC.
  Company Number: GB-IPSEN Group, Research and Development-2025-16021

PATIENT
  Sex: Male

DRUGS (1)
  1. LANREOTIDE ACETATE [Suspect]
     Active Substance: LANREOTIDE ACETATE
     Indication: Neuroendocrine tumour
     Dosage: LANREOTIDE 120MG/0.5ML SOLUTION FOR INJECTION PREFILLED SYRINGES (IPSEN LTD) 1 PREFILLED DISPOSABLE INJECTION. ?E28D

REACTIONS (3)
  - Small intestinal obstruction [Not Recovered/Not Resolved]
  - Fluid imbalance [Not Recovered/Not Resolved]
  - Infection [Not Recovered/Not Resolved]
